FAERS Safety Report 8560568-0 (Version None)
Quarter: 2012Q2

REPORT INFORMATION
  Report Type: 
  Country: None (occurrence: None)
  Receive Date: 20120623
  Receipt Date: 20120709
  Transmission Date: 20120825
  Serious: Yes (Death, Other)
  Sender: FDA-Public Use
  Company Number: FK201201936

PATIENT
  Age: 76 Year
  Sex: Male

DRUGS (3)
  1. VANCOMYCIN [Suspect]
     Indication: STAPHYLOCOCCAL INFECTION
  2. GENTAMICIN [Concomitant]
  3. CEFTRIAXONE SODIUM [Concomitant]

REACTIONS (10)
  - HAEMOGLOBIN DECREASED [None]
  - SYNCOPE [None]
  - STAPHYLOCOCCAL BACTERAEMIA [None]
  - RENAL IMPAIRMENT [None]
  - MULTI-ORGAN FAILURE [None]
  - HAEMODYNAMIC INSTABILITY [None]
  - DUODENAL ULCER [None]
  - ACIDOSIS [None]
  - UPPER GASTROINTESTINAL HAEMORRHAGE [None]
  - GASTRITIS EROSIVE [None]
